FAERS Safety Report 8878835 (Version 1)
Quarter: 2012Q4

REPORT INFORMATION
  Report Type: 
  Country: FR (occurrence: FR)
  Receive Date: 20121026
  Receipt Date: 20121026
  Transmission Date: 20130627
  Serious: Yes (Hospitalization)
  Sender: FDA-Public Use
  Company Number: FR-BRISTOL-MYERS SQUIBB COMPANY-17051780

PATIENT
  Age: 88 Year
  Sex: Female

DRUGS (10)
  1. COUMADINE [Suspect]
     Indication: ATRIAL FIBRILLATION
     Route: 048
     Dates: start: 201112, end: 20120305
  2. CORTANCYL [Concomitant]
  3. SPECIAFOLDINE [Concomitant]
  4. SERESTA [Concomitant]
  5. LASILIX [Concomitant]
  6. CORDARONE [Concomitant]
  7. ATENOLOL [Concomitant]
  8. SIFROL [Concomitant]
  9. CACIT D3 [Concomitant]
  10. BACTRIM FORTE [Concomitant]

REACTIONS (4)
  - Muscle haemorrhage [Recovered/Resolved]
  - Anaemia [Recovered/Resolved]
  - International normalised ratio increased [Recovered/Resolved]
  - Overdose [Unknown]
